FAERS Safety Report 5468204-7 (Version None)
Quarter: 2007Q3

REPORT INFORMATION
  Report Type: 
  Country: None (occurrence: None)
  Receive Date: 20070926
  Receipt Date: 20070801
  Transmission Date: 20080115
  Serious: Yes (Death, Other)
  Sender: FDA-Public Use
  Company Number: US-PURDUE-USA_2007_0029255

PATIENT
  Age: 43 Year
  Sex: Male

DRUGS (1)
  1. OXYCONTIN [Suspect]
     Indication: DRUG USE FOR UNKNOWN INDICATION

REACTIONS (6)
  - DEATH [None]
  - DEPRESSION [None]
  - DRUG DEPENDENCE [None]
  - FATIGUE [None]
  - IMPAIRED WORK ABILITY [None]
  - SUICIDAL IDEATION [None]
